FAERS Safety Report 6199846-1 (Version None)
Quarter: 2009Q2

REPORT INFORMATION
  Report Type: 
  Country: None (occurrence: None)
  Receive Date: 20090522
  Receipt Date: 20090511
  Transmission Date: 20091009
  Serious: Yes (Hospitalization)
  Sender: FDA-Public Use
  Company Number: TR-ELI_LILLY_AND_COMPANY-TR200905004092

PATIENT
  Age: 44 Year

DRUGS (2)
  1. HUMULIN R [Suspect]
     Indication: DIABETES MELLITUS
     Dosage: 8 U, 3/D
     Route: 058
     Dates: start: 20081201
  2. HUMULIN N [Suspect]
     Indication: DIABETES MELLITUS
     Dosage: 12 U, DAILY (1/D) (AT NIGHT)
     Route: 058
     Dates: start: 20081201

REACTIONS (2)
  - BLOOD GLUCOSE INCREASED [None]
  - PROTEIN TOTAL DECREASED [None]
